FAERS Safety Report 24578942 (Version 3)
Quarter: 2024Q4

REPORT INFORMATION
  Report Type: Spontaneous
  Country: JP (occurrence: JP)
  Receive Date: 20241105
  Receipt Date: 20241126
  Transmission Date: 20250115
  Serious: Yes (Other)
  Sender: CSL BEHRING
  Company Number: JP-BEH-2024181189

PATIENT
  Age: 82 Year
  Sex: Male

DRUGS (7)
  1. ALBUMINAR-5 [Suspect]
     Active Substance: ALBUMIN HUMAN
     Indication: Hypoalbuminaemia
     Dosage: 1V, SINGLE
     Route: 042
     Dates: start: 20241004, end: 20241004
  2. ALBUMINAR-5 [Suspect]
     Active Substance: ALBUMIN HUMAN
     Dosage: 1V, SINGLE
     Route: 042
     Dates: start: 20241006, end: 20241006
  3. ALBUMINAR-5 [Suspect]
     Active Substance: ALBUMIN HUMAN
     Dosage: 1V, SINGLE
     Route: 042
     Dates: start: 20241007, end: 20241007
  4. ALBUMINAR-5 [Suspect]
     Active Substance: ALBUMIN HUMAN
     Dosage: 1V, SINGLE
     Route: 042
     Dates: start: 20241007, end: 20241007
  5. ALBUMIN HUMAN [Suspect]
     Active Substance: ALBUMIN HUMAN
     Indication: Hypoalbuminaemia
     Dosage: 2V, QD
     Route: 042
     Dates: start: 20240930, end: 20241001
  6. ALBUMIN HUMAN [Suspect]
     Active Substance: ALBUMIN HUMAN
     Dosage: 1V, SINGLE
     Route: 042
     Dates: start: 20241002, end: 20241002
  7. ALBUMIN HUMAN [Suspect]
     Active Substance: ALBUMIN HUMAN
     Dosage: 1V, SINGLE
     Route: 042
     Dates: start: 20241002, end: 20241002

REACTIONS (6)
  - Fungal infection [Fatal]
  - Blood beta-D-glucan increased [Fatal]
  - False positive investigation result [Fatal]
  - Bacteraemia [Fatal]
  - Bacterial sepsis [Fatal]
  - Multiple organ dysfunction syndrome [Fatal]

NARRATIVE: CASE EVENT DATE: 20241007
